FAERS Safety Report 9307239 (Version 2)
Quarter: 2013Q2

REPORT INFORMATION
  Report Type: Spontaneous
  Country: GB (occurrence: GB)
  Receive Date: 20130524
  Receipt Date: 20130612
  Transmission Date: 20140414
  Serious: Yes (Hospitalization)
  Sender: FDA-Public Use
  Company Number: GB-ROCHE-1228034

PATIENT
  Age: 43 Year
  Sex: Male
  Weight: 95.4 kg

DRUGS (8)
  1. XOLAIR [Suspect]
     Indication: ASTHMA
     Route: 065
  2. XOLAIR [Suspect]
     Route: 065
     Dates: start: 201303
  3. MONTELUKAST [Concomitant]
  4. SALBUTAMOL [Concomitant]
     Route: 065
  5. IPRATROPIUM [Concomitant]
     Route: 065
  6. BECONASE [Concomitant]
     Route: 045
  7. SLO-PHYLLIN [Concomitant]
  8. SYMBICORT [Concomitant]
     Dosage: 400/12
     Route: 065

REACTIONS (1)
  - Asthma [Recovered/Resolved]
